FAERS Safety Report 5852746-6 (Version None)
Quarter: 2008Q3

REPORT INFORMATION
  Report Type: 
  Country: None (occurrence: None)
  Receive Date: 20080821
  Receipt Date: 20080815
  Transmission Date: 20090109
  Serious: Yes (Hospitalization)
  Sender: FDA-Public Use
  Company Number: US-AVENTIS-200815292US

PATIENT
  Age: 50 Year
  Sex: Male

DRUGS (6)
  1. LANTUS [Suspect]
     Route: 058
     Dates: start: 20080614
  2. GLYBURIDE [Concomitant]
     Dosage: DOSE: UNK
  3. METOPROLOL TARTRATE [Concomitant]
     Dosage: DOSE: UNK
  4. ALTACE [Concomitant]
     Dosage: DOSE: UNK
  5. IMDUR [Concomitant]
     Dosage: DOSE: UNK
  6. PLAVIX [Concomitant]
     Dosage: DOSE: UNK

REACTIONS (2)
  - BLOOD GLUCOSE INCREASED [None]
  - CHEST PAIN [None]
